FAERS Safety Report 20071626 (Version 1)
Quarter: 2021Q4

REPORT INFORMATION
  Report Type: Spontaneous
  Country: DE (occurrence: DE)
  Receive Date: 20211116
  Receipt Date: 20211116
  Transmission Date: 20220303
  Serious: Yes (Life-Threatening, Hospitalization, Other)
  Sender: FDA-Public Use
  Company Number: DE-MLMSERVICE-20211027-3188156-1

PATIENT
  Age: 19 Year
  Sex: Female

DRUGS (3)
  1. CISPLATIN [Suspect]
     Active Substance: CISPLATIN
     Indication: Ovarian germ cell tumour
  2. ETOPOSIDE [Suspect]
     Active Substance: ETOPOSIDE
     Indication: Ovarian germ cell tumour
  3. BLEOMYCIN [Suspect]
     Active Substance: BLEOMYCIN SULFATE
     Indication: Ovarian germ cell tumour

REACTIONS (12)
  - Escherichia bacteraemia [Recovered/Resolved]
  - Streptococcal bacteraemia [Recovered/Resolved]
  - Left ventricular dysfunction [Recovered/Resolved]
  - Respiratory failure [Recovered/Resolved]
  - Parvovirus B19 infection [Recovered/Resolved]
  - Viral myocarditis [Recovered/Resolved]
  - Leukopenia [Recovered/Resolved]
  - Cardiogenic shock [Recovered/Resolved]
  - Mitral valve incompetence [Recovered/Resolved]
  - Pleural effusion [Recovered/Resolved]
  - Cardiac failure [Recovered/Resolved]
  - Off label use [Unknown]
